FAERS Safety Report 11927026 (Version 1)
Quarter: 2016Q1

REPORT INFORMATION
  Report Type: Spontaneous
  Country: CA (occurrence: CA)
  Receive Date: 20160119
  Receipt Date: 20160119
  Transmission Date: 20160526
  Serious: Yes (Life-Threatening)
  Sender: FDA-Public Use
  Company Number: CA-TOLMAR, INC.-2016CA000247

PATIENT

DRUGS (5)
  1. RYTHMODAN                          /00271801/ [Suspect]
     Active Substance: DISOPYRAMIDE
     Dosage: 300 MG, AT BEDTIME
     Route: 048
     Dates: start: 2003
  2. DOCETAXEL. [Suspect]
     Active Substance: DOCETAXEL
     Indication: LUNG NEOPLASM MALIGNANT
     Dosage: UNK, ONCE EVERY 3 WEEKS FOR 10 CYCLES
     Route: 042
     Dates: start: 20160106
  3. PREDNISONE. [Concomitant]
     Active Substance: PREDNISONE
     Dosage: 5 MG, TWICE DAILY
     Route: 048
     Dates: start: 20160106
  4. ELIGARD [Suspect]
     Active Substance: LEUPROLIDE ACETATE
     Indication: PROSTATE CANCER
     Dosage: UNK
     Route: 058
  5. RYTHMODAN                          /00271801/ [Suspect]
     Active Substance: DISOPYRAMIDE
     Indication: PRODUCT USED FOR UNKNOWN INDICATION
     Dosage: 200 MG, IN THE MORNING
     Route: 048
     Dates: start: 2003

REACTIONS (4)
  - Heart rate irregular [Recovered/Resolved]
  - Heart rate increased [Recovered/Resolved]
  - Blood pressure increased [Recovered/Resolved]
  - Metastases to lung [Not Recovered/Not Resolved]
